FAERS Safety Report 12690574 (Version 5)
Quarter: 2017Q2

REPORT INFORMATION
  Report Type: Report from Study
  Country: None (occurrence: AU)
  Receive Date: 20160826
  Receipt Date: 20170417
  Transmission Date: 20170830
  Serious: Yes (Other)
  Sender: FDA-Public Use
  Company Number: AU-ABBVIE-16K-008-1677385-00

PATIENT
  Age: 70 Year
  Sex: Male

DRUGS (4)
  1. DUODOPA [Suspect]
     Active Substance: CARBIDOPA\LEVODOPA
     Dosage: CD: 4.5ML/HR; ED: 1.5ML/HR
     Route: 050
  2. DUODOPA [Suspect]
     Active Substance: CARBIDOPA\LEVODOPA
     Indication: PARKINSON^S DISEASE
     Dosage: 16 HOUR INFUSION; CR: 4.1ML/HOUR; ED: 1.0 ML/HR
     Route: 050
     Dates: start: 20150817
  3. DUODOPA [Suspect]
     Active Substance: CARBIDOPA\LEVODOPA
     Dosage: DOSE INCREASED
     Route: 050
     Dates: start: 20170412
  4. DUODOPA [Suspect]
     Active Substance: CARBIDOPA\LEVODOPA
     Dosage: CD: 4.3ML/HR; ED: 1.5ML/HR
     Route: 050

REACTIONS (8)
  - On and off phenomenon [Not Recovered/Not Resolved]
  - Rectal haemorrhage [Unknown]
  - Asthenia [Unknown]
  - Freezing phenomenon [Unknown]
  - Device issue [Unknown]
  - Fatigue [Not Recovered/Not Resolved]
  - Drug effect decreased [Unknown]
  - Drug effect delayed [Unknown]

NARRATIVE: CASE EVENT DATE: 2016
